FAERS Safety Report 11814169 (Version 1)
Quarter: 2015Q4

REPORT INFORMATION
  Report Type: Spontaneous
  Country: US (occurrence: None)
  Receive Date: 20151208
  Receipt Date: 20151208
  Transmission Date: 20160305
  Serious: Yes (Disabling)
  Sender: FDA-Public Use
  Company Number: None

PATIENT
  Age: 43 Year
  Sex: Female
  Weight: 72.58 kg

DRUGS (10)
  1. VALIUM [Concomitant]
     Active Substance: DIAZEPAM
  2. ARMOUR THYROID [Concomitant]
     Active Substance: THYROID, PORCINE\THYROID, UNSPECIFIED
  3. CHLORTRIMETON [Concomitant]
     Active Substance: CHLORPHENIRAMINE MALEATE
  4. TECFIDERA [Suspect]
     Active Substance: DIMETHYL FUMARATE
     Indication: MULTIPLE SCLEROSIS
     Route: 048
     Dates: start: 20140715, end: 20150331
  5. PROBIOTICS [Concomitant]
     Active Substance: PROBIOTICS NOS
  6. SYNTHROID [Concomitant]
     Active Substance: LEVOTHYROXINE SODIUM
  7. BACLOFEN. [Concomitant]
     Active Substance: BACLOFEN
  8. BETHENACOL [Concomitant]
  9. TRAMADOL. [Concomitant]
     Active Substance: TRAMADOL
  10. BYSTOLIC [Concomitant]
     Active Substance: NEBIVOLOL HYDROCHLORIDE

REACTIONS (9)
  - Fatigue [None]
  - Dysphagia [None]
  - Abdominal pain upper [None]
  - Insomnia [None]
  - Asthenia [None]
  - Impaired gastric emptying [None]
  - Vomiting [None]
  - Dehydration [None]
  - Diarrhoea [None]

NARRATIVE: CASE EVENT DATE: 20150512
